FAERS Safety Report 21935595 (Version 3)
Quarter: 2023Q2

REPORT INFORMATION
  Report Type: Spontaneous
  Country: US (occurrence: US)
  Receive Date: 20230201
  Receipt Date: 20230628
  Transmission Date: 20230721
  Serious: No
  Sender: FDA-Public Use
  Company Number: US-SA-SAC20230131000300

PATIENT
  Age: 73 Year
  Sex: Female

DRUGS (2)
  1. DUPIXENT [Suspect]
     Active Substance: DUPILUMAB
     Indication: Dermatitis atopic
     Dosage: 300 MG, QOW
     Route: 058
     Dates: start: 202212
  2. DUPIXENT [Suspect]
     Active Substance: DUPILUMAB
     Dosage: 300 MG, QOW
     Route: 058
     Dates: start: 20230105, end: 2023

REACTIONS (8)
  - Fluid retention [Recovering/Resolving]
  - Swelling [Recovering/Resolving]
  - Muscle twitching [Recovered/Resolved]
  - Peripheral swelling [Not Recovered/Not Resolved]
  - Flatulence [Unknown]
  - Oedema peripheral [Unknown]
  - Back pain [Unknown]
  - Rash [Recovering/Resolving]

NARRATIVE: CASE EVENT DATE: 20230101
